FAERS Safety Report 10682419 (Version 1)
Quarter: 2014Q4

REPORT INFORMATION
  Report Type: Spontaneous
  Country: US (occurrence: US)
  Receive Date: 20141230
  Receipt Date: 20141230
  Transmission Date: 20150529
  Serious: No
  Sender: FDA-Public Use
  Company Number: US-TEVA-474647USA

PATIENT
  Sex: Male

DRUGS (2)
  1. UNKNOWN ANTIDEPRESSANT DRUGS [Suspect]
     Active Substance: UNSPECIFIED INGREDIENT
     Indication: DEPRESSION
  2. TRAZODONE [Suspect]
     Active Substance: TRAZODONE HYDROCHLORIDE
     Indication: SLEEP DISORDER

REACTIONS (3)
  - Dysphagia [Unknown]
  - Choking sensation [Unknown]
  - Dyspnoea [Unknown]
